FAERS Safety Report 4388717-9 (Version None)
Quarter: 2004Q3

REPORT INFORMATION
  Report Type: 
  Country: None (occurrence: None)
  Receive Date: 20040701
  Receipt Date: 20040624
  Transmission Date: 20050211
  Serious: Yes (Other)
  Sender: FDA-Public Use
  Company Number: CA-GLAXOSMITHKLINE-A0516034A

PATIENT
  Age: 4 Year
  Sex: Male
  Weight: 17.7 kg

DRUGS (1)
  1. FLOVENT [Suspect]
     Indication: ASTHMA
     Route: 055

REACTIONS (6)
  - CRYING [None]
  - EYE IRRITATION [None]
  - POLLAKIURIA [None]
  - SOCIAL PROBLEM [None]
  - STRESS SYMPTOMS [None]
  - URINARY INCONTINENCE [None]
